FAERS Safety Report 5167862-4 (Version None)
Quarter: 2006Q4

REPORT INFORMATION
  Report Type: 
  Country: None (occurrence: None)
  Receive Date: 20061206
  Receipt Date: 20061206
  Transmission Date: 20070319
  Serious: Yes (Hospitalization)
  Sender: FDA-Public Use
  Company Number: None

PATIENT
  Age: 61 Year
  Sex: Male

DRUGS (2)
  1. CEPHALEXIN [Suspect]
     Indication: INFECTION
     Dosage: 500MG  PO  TID
     Route: 048
  2. CIPRO [Suspect]
     Dosage: 500MG  PO  BID

REACTIONS (3)
  - DIARRHOEA [None]
  - PROSTATITIS [None]
  - VOMITING [None]
